FAERS Safety Report 25214311 (Version 4)
Quarter: 2025Q2

REPORT INFORMATION
  Report Type: Report from Study
  Country: JP (occurrence: JP)
  Receive Date: 20250418
  Receipt Date: 20250603
  Transmission Date: 20250716
  Serious: Yes (Hospitalization, Other)
  Sender: ABBVIE
  Company Number: JP-ABBVIE-6185585

PATIENT
  Age: 73 Year
  Sex: Female

DRUGS (3)
  1. VYALEV [Suspect]
     Active Substance: FOSCARBIDOPA\FOSLEVODOPA
     Indication: Parkinson^s disease
     Route: 058
     Dates: start: 20250303
  2. VYALEV [Suspect]
     Active Substance: FOSCARBIDOPA\FOSLEVODOPA
     Route: 058
     Dates: start: 2025
  3. CARBIDOPA AND LEVODOPA [Concomitant]
     Active Substance: CARBIDOPA\LEVODOPA
     Indication: Parkinson^s disease
     Route: 048

REACTIONS (13)
  - Seizure [Unknown]
  - Infusion site discharge [Unknown]
  - Infusion site reaction [Unknown]
  - Mobility decreased [Unknown]
  - Malaise [Unknown]
  - Somnolence [Unknown]
  - Infusion site mass [Recovered/Resolved]
  - Hypertension [Unknown]
  - Infusion site mass [Unknown]
  - Blood pressure decreased [Unknown]
  - Fatigue [Unknown]
  - Infusion site induration [Unknown]
  - Hospitalisation [Not Recovered/Not Resolved]

NARRATIVE: CASE EVENT DATE: 20250101
